FAERS Safety Report 9521671 (Version 2)
Quarter: 2014Q3

REPORT INFORMATION
  Report Type: Spontaneous
  Country: DK (occurrence: DK)
  Receive Date: 20130913
  Receipt Date: 20140912
  Transmission Date: 20150326
  Serious: Yes (Other)
  Sender: FDA-Public Use
  Company Number: PHHY2013DK100718

PATIENT
  Age: 54 Year
  Sex: Female

DRUGS (1)
  1. ZOMETA [Suspect]
     Active Substance: ZOLEDRONIC ACID
     Indication: BREAST CANCER METASTATIC
     Dosage: 4 MG/100 ML
     Route: 042
     Dates: start: 20100505, end: 20110308

REACTIONS (6)
  - Infection [Recovered/Resolved]
  - Exposed bone in jaw [Recovered/Resolved]
  - Gingivitis [Recovered/Resolved]
  - Debridement [Recovered/Resolved]
  - Osteonecrosis of jaw [Recovered/Resolved]
  - Dental fistula [Recovered/Resolved]

NARRATIVE: CASE EVENT DATE: 20110308
